FAERS Safety Report 8478300-8 (Version None)
Quarter: 2012Q2

REPORT INFORMATION
  Report Type: 
  Country: None (occurrence: None)
  Receive Date: 20120629
  Receipt Date: 20120621
  Transmission Date: 20120825
  Serious: Yes (Other)
  Sender: FDA-Public Use
  Company Number: CA-JNJFOC-20120610914

PATIENT
  Sex: Female
  Weight: 84 kg

DRUGS (2)
  1. REMICADE [Suspect]
     Indication: RHEUMATOID ARTHRITIS
     Dosage: HAS HAD 50 INFUSIONS
     Route: 042
  2. ARAVA [Concomitant]
     Route: 048

REACTIONS (2)
  - SURGERY [None]
  - EAR INFECTION [None]
